FAERS Safety Report 5449910-7 (Version None)
Quarter: 2007Q3

REPORT INFORMATION
  Report Type: 
  Country: None (occurrence: None)
  Receive Date: 20070910
  Receipt Date: 20070910
  Transmission Date: 20080115
  Serious: Yes (Hospitalization, Disabling)
  Sender: FDA-Public Use
  Company Number: None

PATIENT
  Age: 82 Year
  Sex: Male
  Weight: 80.7403 kg

DRUGS (1)
  1. GABAPENTIN [Suspect]
     Indication: NEUROPATHY PERIPHERAL
     Dosage: 600 MG 4 TIMES PER DAY
     Dates: start: 20070110, end: 20070409

REACTIONS (6)
  - BALANCE DISORDER [None]
  - BLOOD SODIUM DECREASED [None]
  - ELECTROLYTE DEPLETION [None]
  - MUSCULAR WEAKNESS [None]
  - PAIN [None]
  - WEIGHT DECREASED [None]
